FAERS Safety Report 10537514 (Version 1)
Quarter: 2014Q4

REPORT INFORMATION
  Report Type: Spontaneous
  Country: US (occurrence: None)
  Receive Date: 20141022
  Receipt Date: 20141022
  Transmission Date: 20150529
  Serious: Yes (Hospitalization)
  Sender: FDA-Public Use
  Company Number: None

PATIENT
  Age: 76 Year
  Sex: Male
  Weight: 68.04 kg

DRUGS (1)
  1. ASACOL HD [Suspect]
     Active Substance: MESALAMINE
     Indication: COLITIS
     Dosage: 2 PILLS
     Route: 048
     Dates: start: 20140102, end: 20140106

REACTIONS (6)
  - Toxicity to various agents [None]
  - Dysstasia [None]
  - Abasia [None]
  - Gout [None]
  - Blood creatine phosphokinase increased [None]
  - Muscular weakness [None]

NARRATIVE: CASE EVENT DATE: 20130102
